FAERS Safety Report 18384276 (Version 1)
Quarter: 2020Q4

REPORT INFORMATION
  Report Type: Spontaneous
  Country: AU (occurrence: AU)
  Receive Date: 20201015
  Receipt Date: 20201015
  Transmission Date: 20210114
  Serious: Yes (Other)
  Sender: FDA-Public Use
  Company Number: NVSC2020AU272815

PATIENT
  Sex: Male

DRUGS (1)
  1. ENTRESTO [Suspect]
     Active Substance: SACUBITRIL\VALSARTAN
     Indication: PRODUCT USED FOR UNKNOWN INDICATION
     Dosage: 50 MG, QD (24/26 MG IN THE MORNING)
     Route: 065

REACTIONS (3)
  - Incorrect dose administered [Unknown]
  - Inappropriate schedule of product administration [Unknown]
  - Memory impairment [Unknown]

NARRATIVE: CASE EVENT DATE: 2020
